FAERS Safety Report 21715634 (Version 1)
Quarter: 2022Q4

REPORT INFORMATION
  Report Type: Spontaneous
  Country: US (occurrence: None)
  Receive Date: 20221211
  Receipt Date: 20221211
  Transmission Date: 20230112
  Serious: Yes (Hospitalization)
  Sender: FDA-Public Use
  Company Number: None

PATIENT
  Age: 49 Year
  Sex: Female
  Weight: 81 kg

DRUGS (4)
  1. VANCOMYCIN [Suspect]
     Active Substance: VANCOMYCIN
     Dosage: FREQUENCY : EVERY 8 HOURS;?
     Route: 042
     Dates: start: 20221013, end: 20221017
  2. INSULIN NOS [Concomitant]
     Active Substance: INSULIN NOS
  3. ASPART [Concomitant]
  4. GLUCOMETER [Concomitant]

REACTIONS (8)
  - Vancomycin infusion reaction [None]
  - Pain in extremity [None]
  - Skin irritation [None]
  - Erythema [None]
  - Scab [None]
  - Skin discolouration [None]
  - Dry skin [None]
  - Skin exfoliation [None]

NARRATIVE: CASE EVENT DATE: 20221013
